FAERS Safety Report 12389217 (Version 1)
Quarter: 2016Q2

REPORT INFORMATION
  Report Type: Spontaneous
  Country: US (occurrence: None)
  Receive Date: 20160519
  Receipt Date: 20160519
  Transmission Date: 20160815
  Serious: No
  Sender: FDA-Public Use
  Company Number: None

PATIENT
  Age: 64 Year
  Sex: Female

DRUGS (7)
  1. LORAZEPAM. [Concomitant]
     Active Substance: LORAZEPAM
  2. ESTRADIOL. [Concomitant]
     Active Substance: ESTRADIOL
  3. ESCITALOPRAM [Concomitant]
     Active Substance: ESCITALOPRAM OXALATE
  4. EXTAVIA [Concomitant]
     Active Substance: INTERFERON BETA-1B
  5. IBUPROFEN. [Suspect]
     Active Substance: IBUPROFEN
  6. AMPYRA [Suspect]
     Active Substance: DALFAMPRIDINE
     Indication: MULTIPLE SCLEROSIS
     Route: 048
     Dates: start: 201008
  7. CARBAMAZAPINE [Concomitant]
     Active Substance: CARBAMAZEPINE

REACTIONS (3)
  - Haematuria [None]
  - Dysuria [None]
  - Micturition urgency [None]

NARRATIVE: CASE EVENT DATE: 20160430
